FAERS Safety Report 6829228-8 (Version None)
Quarter: 2010Q3

REPORT INFORMATION
  Report Type: 
  Country: None (occurrence: None)
  Receive Date: 20100709
  Receipt Date: 20070509
  Transmission Date: 20110219
  Serious: No
  Sender: FDA-Public Use
  Company Number: US-PFIZER INC-2007018933

PATIENT
  Sex: Female
  Weight: 38.56 kg

DRUGS (3)
  1. CHANTIX [Suspect]
     Indication: SMOKING CESSATION THERAPY
     Dates: start: 20070301
  2. PULMICORT [Concomitant]
  3. MULTI-VITAMINS [Concomitant]

REACTIONS (3)
  - COLD SWEAT [None]
  - DIZZINESS [None]
  - INCORRECT DOSE ADMINISTERED [None]
